FAERS Safety Report 17686417 (Version 1)
Quarter: 2020Q2

REPORT INFORMATION
  Report Type: Spontaneous
  Country: US (occurrence: US)
  Receive Date: 20200420
  Receipt Date: 20200420
  Transmission Date: 20200714
  Serious: No
  Sender: FDA-Public Use
  Company Number: US-009507513-2004USA004391

PATIENT
  Sex: Male

DRUGS (3)
  1. ASMANEX HFA [Suspect]
     Active Substance: MOMETASONE FUROATE
     Dosage: INHALE 2 PUFFS 2X PER DAY
     Route: 055
     Dates: start: 20200410
  2. ASMANEX HFA [Suspect]
     Active Substance: MOMETASONE FUROATE
     Dosage: INHALE 2 PUFFS 2X PER DAY
     Route: 055
     Dates: end: 202004
  3. ASMANEX HFA [Suspect]
     Active Substance: MOMETASONE FUROATE
     Dosage: INHALE 2 PUFFS 2X PER DAY
     Route: 055
     Dates: start: 2019

REACTIONS (7)
  - Product leakage [Unknown]
  - Product leakage [Unknown]
  - Product quality issue [Unknown]
  - Product quality issue [Unknown]
  - Poor quality product administered [Unknown]
  - Poor quality product administered [Unknown]
  - No adverse event [Unknown]

NARRATIVE: CASE EVENT DATE: 202004
